FAERS Safety Report 11465347 (Version 1)
Quarter: 2015Q3

REPORT INFORMATION
  Report Type: Spontaneous
  Country: FR (occurrence: FR)
  Receive Date: 20150907
  Receipt Date: 20150907
  Transmission Date: 20151125
  Serious: Yes (Hospitalization, Other)
  Sender: FDA-Public Use
  Company Number: FR-009507513-1509FRA000041

PATIENT
  Sex: Male

DRUGS (1)
  1. ONCOTICE [Suspect]
     Active Substance: BACILLUS CALMETTE-GUERIN SUBSTRAIN TICE LIVE ANTIGEN
     Indication: BLADDER CANCER
     Dosage: UNK
     Dates: start: 201405, end: 201405

REACTIONS (6)
  - Cholelithiasis [Recovered/Resolved]
  - Abscess [Recovering/Resolving]
  - Cyst removal [Unknown]
  - Cholecystectomy [Unknown]
  - Gastric ulcer perforation [Unknown]
  - Tuberculosis of genitourinary system [Unknown]

NARRATIVE: CASE EVENT DATE: 2014
